FAERS Safety Report 24759987 (Version 1)
Quarter: 2024Q4

REPORT INFORMATION
  Report Type: Spontaneous
  Country: DE (occurrence: DE)
  Receive Date: 20241220
  Receipt Date: 20241220
  Transmission Date: 20250114
  Serious: Yes (Other)
  Sender: BRACCO
  Company Number: DE-BRACCO-2022DE05248

PATIENT
  Age: 46 Year
  Sex: Female

DRUGS (1)
  1. MULTIHANCE [Suspect]
     Active Substance: GADOBENATE DIMEGLUMINE
     Indication: Magnetic resonance imaging breast
     Dosage: 10 ML, SINGLE
     Route: 042
     Dates: start: 20191111, end: 20191111

REACTIONS (14)
  - Drug level increased [Recovering/Resolving]
  - Cubital tunnel syndrome [Recovering/Resolving]
  - Ulnar tunnel syndrome [Recovering/Resolving]
  - Chest pain [Recovering/Resolving]
  - Joint stiffness [Recovering/Resolving]
  - Muscle twitching [Recovering/Resolving]
  - Muscular weakness [Recovering/Resolving]
  - Visual impairment [Recovering/Resolving]
  - Cognitive disorder [Recovering/Resolving]
  - Alopecia [Recovering/Resolving]
  - Balance disorder [Recovering/Resolving]
  - Cartilage injury [Recovering/Resolving]
  - Hormone level abnormal [Recovering/Resolving]
  - Respiration abnormal [Recovering/Resolving]

NARRATIVE: CASE EVENT DATE: 20200213
